FAERS Safety Report 9678096 (Version 3)
Quarter: 2014Q1

REPORT INFORMATION
  Report Type: Spontaneous
  Country: US (occurrence: US)
  Receive Date: 20131108
  Receipt Date: 20140311
  Transmission Date: 20141002
  Serious: No
  Sender: FDA-Public Use
  Company Number: US-009507513-1310USA013429

PATIENT
  Sex: Female

DRUGS (4)
  1. FOLLISTIM AQ CARTRIDGE [Suspect]
     Dosage: UNK
  2. FOLLISTIM AQ CARTRIDGE [Suspect]
     Dosage: UNK
  3. FOLLISTIM AQ CARTRIDGE [Suspect]
     Dosage: UNK
  4. PUREGON PEN [Suspect]
     Indication: PRODUCT USED FOR UNKNOWN INDICATION

REACTIONS (2)
  - Inappropriate schedule of drug administration [Unknown]
  - Device malfunction [Unknown]
